FAERS Safety Report 11244897 (Version 2)
Quarter: 2015Q3

REPORT INFORMATION
  Report Type: Spontaneous
  Country: CH (occurrence: CH)
  Receive Date: 20150707
  Receipt Date: 20150911
  Transmission Date: 20151125
  Serious: Yes (Hospitalization)
  Sender: FDA-Public Use
  Company Number: CH-BAYER-2015-369459

PATIENT
  Sex: Male

DRUGS (5)
  1. XOFIGO [Suspect]
     Active Substance: RADIUM RA-223 DICHLORIDE
     Indication: METASTASES TO BONE
     Dosage: 3.03 MBQ
     Route: 042
     Dates: start: 20150310, end: 20150310
  2. XOFIGO [Suspect]
     Active Substance: RADIUM RA-223 DICHLORIDE
     Indication: PROSTATE CANCER STAGE IV
     Dosage: 3.0 MBQ
     Route: 042
     Dates: start: 20150507, end: 20150507
  3. XOFIGO [Suspect]
     Active Substance: RADIUM RA-223 DICHLORIDE
     Indication: PROSTATE CANCER STAGE IV
     Dosage: 2.9 MBQ
     Route: 042
     Dates: start: 20150609, end: 20150609
  4. XOFIGO [Suspect]
     Active Substance: RADIUM RA-223 DICHLORIDE
     Indication: PROSTATE CANCER STAGE IV
     Dosage: 3.05 MBQ
     Route: 042
     Dates: start: 20150210, end: 20150210
  5. XOFIGO [Suspect]
     Active Substance: RADIUM RA-223 DICHLORIDE
     Indication: PROSTATE CANCER STAGE IV
     Dosage: 2.97 MBQ
     Route: 042
     Dates: start: 20150409, end: 20150409

REACTIONS (1)
  - General physical health deterioration [Unknown]
